FAERS Safety Report 15180428 (Version 1)
Quarter: 2018Q3

REPORT INFORMATION
  Report Type: Spontaneous
  Country: US (occurrence: US)
  Receive Date: 20180723
  Receipt Date: 20180723
  Transmission Date: 20181010
  Serious: No
  Sender: FDA-Public Use
  Company Number: US-BAYER-2018-137984

PATIENT
  Age: 85 Year
  Sex: Female
  Weight: 59 kg

DRUGS (1)
  1. MIRALAX [Suspect]
     Active Substance: POLYETHYLENE GLYCOL 3350
     Indication: GASTROINTESTINAL DISORDER
     Dosage: .25 CAP DAILY
     Route: 048

REACTIONS (5)
  - Product prescribing issue [Unknown]
  - Diarrhoea [Unknown]
  - Drug effective for unapproved indication [None]
  - Incorrect dosage administered [Unknown]
  - Product use issue [Unknown]
